FAERS Safety Report 16300168 (Version 1)
Quarter: 2019Q2

REPORT INFORMATION
  Report Type: Spontaneous
  Country: FI (occurrence: FI)
  Receive Date: 20190510
  Receipt Date: 20190510
  Transmission Date: 20190711
  Serious: Yes (Other)
  Sender: FDA-Public Use
  Company Number: FI-ASTRAZENECA-2019SE67352

PATIENT
  Age: 14 Year
  Sex: Female

DRUGS (3)
  1. SERTRALINE [Suspect]
     Active Substance: SERTRALINE HYDROCHLORIDE
     Indication: DEPRESSION
     Dosage: STRENGTH: 100 MG
     Route: 048
  2. KETIPINOR [Suspect]
     Active Substance: QUETIAPINE FUMARATE
     Indication: MENTAL DISORDER
     Dosage: STRENGTH: 100 MG AND 25 MG DOSE:100 MG X 1 AND 25
     Route: 048
  3. KETIPINOR [Suspect]
     Active Substance: QUETIAPINE FUMARATE
     Indication: MENTAL DISORDER
     Dosage: STRENGTH: 100 MG AND 25 MG DOSE:100 MG X 1 AND 25
     Route: 048

REACTIONS (3)
  - Mydriasis [Unknown]
  - Optic nerve injury [Unknown]
  - Visual impairment [Unknown]
